FAERS Safety Report 5043042-8 (Version None)
Quarter: 2006Q2

REPORT INFORMATION
  Report Type: 
  Country: None (occurrence: None)
  Receive Date: 20060627
  Receipt Date: 20060612
  Transmission Date: 20061013
  Serious: Yes (Other)
  Sender: FDA-Public Use
  Company Number: 2006032207

PATIENT
  Age: 66 Year
  Sex: Male

DRUGS (1)
  1. LATANOPROST [Suspect]
     Indication: INTRAOCULAR PRESSURE INCREASED
     Dosage: OPHTHALMIC
     Route: 047
     Dates: start: 20040513, end: 20040517

REACTIONS (4)
  - BLINDNESS UNILATERAL [None]
  - HYPERAEMIA [None]
  - IRIDOCYCLITIS [None]
  - OCULAR HYPERTENSION [None]
